FAERS Safety Report 7322533-0 (Version None)
Quarter: 2011Q1

REPORT INFORMATION
  Report Type: 
  Country: None (occurrence: None)
  Receive Date: 20110215
  Receipt Date: 20110203
  Transmission Date: 20110831
  Serious: Yes (Hospitalization)
  Sender: FDA-Public Use
  Company Number: 026849

PATIENT
  Sex: Male

DRUGS (9)
  1. INEXIUM /01489302/ [Concomitant]
  2. AMLODIPINE [Concomitant]
  3. TAHOR [Concomitant]
  4. PLAVIX [Concomitant]
  5. NOVONORM [Concomitant]
  6. NOVORAPID [Concomitant]
  7. KEPPRA [Suspect]
     Dosage: ORAL
     Route: 048
     Dates: start: 20101204, end: 20110121
  8. PERINDOPRIL ERBUMINE [Suspect]
     Dosage: ORAL
     Route: 048
  9. EUPRESSYL /0631801/ [Concomitant]

REACTIONS (3)
  - TONGUE OEDEMA [None]
  - ANGIOEDEMA [None]
  - LARYNGEAL OEDEMA [None]
